FAERS Safety Report 4553192-8 (Version None)
Quarter: 2005Q1

REPORT INFORMATION
  Report Type: 
  Country: None (occurrence: None)
  Receive Date: 20050112
  Receipt Date: 20041227
  Transmission Date: 20050727
  Serious: Yes (Hospitalization, Other)
  Sender: FDA-Public Use
  Company Number: USA031253900

PATIENT
  Age: 73 Year
  Sex: Male
  Weight: 64 kg

DRUGS (5)
  1. FORTEO [Suspect]
     Indication: OSTEOPENIA
     Dosage: 20 UG DAY
     Dates: start: 20030901
  2. ATENOLOL [Concomitant]
  3. OXYCODONE HCL [Concomitant]
  4. FLUTICASONE PROPIONATE [Concomitant]
  5. FENTANYL [Concomitant]

REACTIONS (7)
  - AMNESIA [None]
  - COGNITIVE DISORDER [None]
  - FALL [None]
  - HIP FRACTURE [None]
  - PAIN [None]
  - PELVIC FRACTURE [None]
  - UNEVALUABLE EVENT [None]
